FAERS Safety Report 18548403 (Version 1)
Quarter: 2020Q4

REPORT INFORMATION
  Report Type: Spontaneous
  Country: US (occurrence: US)
  Receive Date: 20201126
  Receipt Date: 20201126
  Transmission Date: 20210114
  Serious: Yes (Other)
  Sender: FDA-Public Use
  Company Number: US-HIKMA PHARMACEUTICALS USA INC.-US-H14001-20-52668

PATIENT
  Age: 67 Year
  Sex: Male

DRUGS (4)
  1. BENZTROPINE. [Suspect]
     Active Substance: BENZTROPINE
     Dosage: TWO TIMES A DAY AS NEEDED
  2. BENZTROPINE. [Suspect]
     Active Substance: BENZTROPINE
     Dosage: DOUBLE HIS PRESCRIBED DOSE PER DAY
  3. HALOPERIDOL DECANOATE. [Suspect]
     Active Substance: HALOPERIDOL DECANOATE
     Indication: SCHIZOPHRENIA
     Route: 030
  4. BENZTROPINE. [Suspect]
     Active Substance: BENZTROPINE
     Indication: SCHIZOPHRENIA
     Dosage: INCREASING DOSES OVER A PERIOD OF MONTHS
     Route: 048

REACTIONS (4)
  - Constipation [Recovered/Resolved]
  - Haematochezia [Recovered/Resolved]
  - Dysuria [Recovered/Resolved]
  - Abdominal pain lower [Recovered/Resolved]
